FAERS Safety Report 14243293 (Version 1)
Quarter: 2017Q4

REPORT INFORMATION
  Report Type: Spontaneous
  Country: US (occurrence: US)
  Receive Date: 20171201
  Receipt Date: 20171201
  Transmission Date: 20180321
  Serious: No
  Sender: FDA-Public Use
  Company Number: US-TEVA-761750ACC

PATIENT
  Sex: Female

DRUGS (1)
  1. MUPIROCIN. [Suspect]
     Active Substance: MUPIROCIN
     Indication: BURNING SENSATION
     Route: 065
     Dates: start: 20170413

REACTIONS (2)
  - Product use in unapproved indication [Unknown]
  - Scab [Unknown]

NARRATIVE: CASE EVENT DATE: 20170413
